FAERS Safety Report 5720053-8 (Version None)
Quarter: 2008Q2

REPORT INFORMATION
  Report Type: 
  Country: None (occurrence: None)
  Receive Date: 20080423
  Receipt Date: 20070310
  Transmission Date: 20081010
  Serious: Yes (Hospitalization)
  Sender: FDA-Public Use
  Company Number: 222445

PATIENT
  Age: 55 Year
  Sex: Female
  Weight: 115.2 kg

DRUGS (6)
  1. AVASTIN [Suspect]
     Indication: BREAST CANCER METASTATIC
     Dosage: 590 MG, Q2W, INTRAVENOUS
     Route: 042
     Dates: start: 20050912
  2. ALOXI [Concomitant]
  3. BENADRYL [Concomitant]
  4. TAGAMET [Concomitant]
  5. TAXOTERE [Concomitant]
  6. PROCRIT [Concomitant]

REACTIONS (5)
  - ASTHENIA [None]
  - DIZZINESS [None]
  - EYELID PTOSIS [None]
  - HEADACHE [None]
  - NAUSEA [None]
